FAERS Safety Report 4749494-2 (Version None)
Quarter: 2005Q3

REPORT INFORMATION
  Report Type: 
  Country: None (occurrence: None)
  Receive Date: 20050819
  Receipt Date: 20050802
  Transmission Date: 20060218
  Serious: Yes (Life-Threatening, Hospitalization)
  Sender: FDA-Public Use
  Company Number: 2005S1007116

PATIENT
  Age: 41 Year
  Sex: Female
  Weight: 106.5953 kg

DRUGS (7)
  1. FENTANYL [Suspect]
     Indication: BACK PAIN
     Dosage: 50 MCG/HR; Q3D; TDER
     Route: 062
     Dates: start: 20050201, end: 20050531
  2. TOPAMAX [Suspect]
     Indication: DEPRESSION
     Dosage: 600 MG; QD; PO
     Route: 048
     Dates: start: 20020101
  3. PERCOCET [Suspect]
     Indication: PAIN
     Dosage: 10 MG; Q6H; PO
     Route: 048
     Dates: start: 20020101, end: 20050531
  4. GABAPENTIN [Concomitant]
  5. SIMVASTATIN [Concomitant]
  6. BUPROPION HYDROCHLORIDE [Concomitant]
  7. OXCARBAZEPINE [Concomitant]

REACTIONS (5)
  - ACCIDENTAL OVERDOSE [None]
  - CARDIAC ENZYMES INCREASED [None]
  - DEPRESSED LEVEL OF CONSCIOUSNESS [None]
  - DYSPNOEA [None]
  - INAPPROPRIATE SCHEDULE OF DRUG ADMINISTRATION [None]
